FAERS Safety Report 23642998 (Version 1)
Quarter: 2024Q1

REPORT INFORMATION
  Report Type: Report from Study
  Country: US (occurrence: US)
  Receive Date: 20240318
  Receipt Date: 20240318
  Transmission Date: 20240410
  Serious: Yes (Hospitalization)
  Sender: FDA-Public Use
  Company Number: US-MIRATI-MT2024PM06210

PATIENT
  Sex: Male

DRUGS (1)
  1. KRAZATI [Suspect]
     Active Substance: ADAGRASIB
     Indication: Rectosigmoid cancer
     Dosage: 600 MG, BID
     Route: 048
     Dates: start: 20240211

REACTIONS (2)
  - Hospitalisation [Unknown]
  - Off label use [Unknown]
